FAERS Safety Report 11620876 (Version 1)
Quarter: 2015Q4

REPORT INFORMATION
  Report Type: Spontaneous
  Country: NZ (occurrence: NZ)
  Receive Date: 20151012
  Receipt Date: 20151012
  Transmission Date: 20160304
  Serious: Yes (Other)
  Sender: FDA-Public Use
  Company Number: NZ-GE HEALTHCARE MEDICAL DIAGNOSTICS-VISP-PR-1510S-0402

PATIENT
  Age: 63 Year
  Sex: Male

DRUGS (11)
  1. VISIPAQUE [Suspect]
     Active Substance: IODIXANOL
     Indication: PRODUCT USED FOR UNKNOWN INDICATION
     Route: 013
     Dates: start: 20151005, end: 20151005
  2. CLOPIDOGREL [Concomitant]
     Active Substance: CLOPIDOGREL BISULFATE
  3. ATORVASTATIN [Concomitant]
     Active Substance: ATORVASTATIN
  4. PREDNISONE. [Concomitant]
     Active Substance: PREDNISONE
  5. METOPROLOL [Concomitant]
     Active Substance: METOPROLOL
  6. PROMETHAZINE [Concomitant]
     Active Substance: PROMETHAZINE\PROMETHAZINE HYDROCHLORIDE
  7. VISIPAQUE [Suspect]
     Active Substance: IODIXANOL
     Indication: DIAGNOSTIC PROCEDURE
  8. ASPIRIN. [Concomitant]
     Active Substance: ASPIRIN
  9. GTN SPRAY [Concomitant]
  10. RANITIDINE [Concomitant]
     Active Substance: RANITIDINE\RANITIDINE HYDROCHLORIDE
  11. PLENDIL [Concomitant]
     Active Substance: FELODIPINE

REACTIONS (4)
  - Stridor [Recovered/Resolved with Sequelae]
  - Urticaria [Recovered/Resolved with Sequelae]
  - Electrocardiogram ST segment elevation [Unknown]
  - Ischaemia [Unknown]

NARRATIVE: CASE EVENT DATE: 201510
